FAERS Safety Report 5490356-3 (Version None)
Quarter: 2007Q4

REPORT INFORMATION
  Report Type: 
  Country: None (occurrence: None)
  Receive Date: 20071019
  Receipt Date: 20071011
  Transmission Date: 20080405
  Serious: Yes (Other)
  Sender: FDA-Public Use
  Company Number: AU-NOVOPROD-268373

PATIENT

DRUGS (2)
  1. PROTAPHANE PENFILL [Suspect]
     Indication: DRUG USE FOR UNKNOWN INDICATION
     Dosage: 12 IU, QD MORNING
  2. ACTRAPID HM PENFILL [Suspect]
     Indication: DRUG USE FOR UNKNOWN INDICATION
     Dosage: ,5-12 IU

REACTIONS (6)
  - ANXIETY [None]
  - DYSPHAGIA [None]
  - DYSPNOEA [None]
  - PANIC ATTACK [None]
  - PARAESTHESIA [None]
  - SWOLLEN TONGUE [None]
